FAERS Safety Report 6988373-7 (Version None)
Quarter: 2010Q3

REPORT INFORMATION
  Report Type: 
  Country: None (occurrence: None)
  Receive Date: 20100916
  Receipt Date: 20100910
  Transmission Date: 20110219
  Serious: Yes (Death)
  Sender: FDA-Public Use
  Company Number: JP-MERCK-1009USA03081

PATIENT
  Age: 80 Year
  Sex: Female

DRUGS (2)
  1. JANUVIA [Suspect]
     Indication: DIABETES MELLITUS
     Route: 048
     Dates: start: 20100501, end: 20100801
  2. ZYLORIC [Concomitant]
     Route: 048

REACTIONS (3)
  - ECZEMA [None]
  - PYREXIA [None]
  - SEPSIS [None]
